FAERS Safety Report 5457438-3 (Version None)
Quarter: 2007Q3

REPORT INFORMATION
  Report Type: 
  Country: None (occurrence: None)
  Receive Date: 20070918
  Receipt Date: 20070906
  Transmission Date: 20080115
  Serious: Yes (Other)
  Sender: FDA-Public Use
  Company Number: US-PFIZER INC-2007074001

PATIENT
  Sex: Female
  Weight: 61.2 kg

DRUGS (3)
  1. CHANTIX [Suspect]
     Indication: SMOKING CESSATION THERAPY
     Dates: start: 20070820, end: 20070829
  2. VALIUM [Concomitant]
  3. MOTRIN [Concomitant]

REACTIONS (22)
  - ACTIVITIES OF DAILY LIVING IMPAIRED [None]
  - ANGER [None]
  - DIZZINESS [None]
  - DYSPEPSIA [None]
  - DYSPHAGIA [None]
  - FEELING COLD [None]
  - FEELING HOT [None]
  - FEELING JITTERY [None]
  - FOREIGN BODY TRAUMA [None]
  - HICCUPS [None]
  - HOMICIDAL IDEATION [None]
  - HOSTILITY [None]
  - HYPERHIDROSIS [None]
  - IRRITABILITY [None]
  - MALAISE [None]
  - NAUSEA [None]
  - NIGHTMARE [None]
  - PAROSMIA [None]
  - SENSATION OF FOREIGN BODY [None]
  - SUICIDAL IDEATION [None]
  - TREMOR [None]
  - VOMITING [None]
